FAERS Safety Report 7293019-7 (Version None)
Quarter: 2011Q1

REPORT INFORMATION
  Report Type: 
  Country: None (occurrence: None)
  Receive Date: 20110215
  Receipt Date: 20110210
  Transmission Date: 20110831
  Serious: Yes (Other)
  Sender: FDA-Public Use
  Company Number: US-ROCHE-736008

PATIENT
  Sex: Male
  Weight: 70.3 kg

DRUGS (2)
  1. ACCUTANE [Suspect]
     Route: 065
     Dates: start: 19931101, end: 19940601
  2. ACCUTANE [Suspect]
     Indication: ACNE
     Route: 065
     Dates: start: 19920901

REACTIONS (5)
  - DEPRESSION [None]
  - CROHN'S DISEASE [None]
  - INTESTINAL OBSTRUCTION [None]
  - GASTROINTESTINAL INJURY [None]
  - RECTAL HAEMORRHAGE [None]
